FAERS Safety Report 18452615 (Version 1)
Quarter: 2020Q4

REPORT INFORMATION
  Report Type: Spontaneous
  Country: US (occurrence: US)
  Receive Date: 20201102
  Receipt Date: 20201102
  Transmission Date: 20210114
  Serious: No
  Sender: FDA-Public Use
  Company Number: US-PFIZER INC-2020420380

PATIENT
  Age: 57 Year
  Sex: Male
  Weight: 94.35 kg

DRUGS (3)
  1. SILDENAFIL CITRATE. [Suspect]
     Active Substance: SILDENAFIL CITRATE
     Dosage: 50 MG (50MG TABLET, 1 TABLET 30 TO 45 MINUTES BEFORE INTERCOURSE BY MOUTH)
     Route: 048
  2. XIAFLEX [Concomitant]
     Active Substance: COLLAGENASE CLOSTRIDIUM HISTOLYTICUM
     Indication: PEYRONIE^S DISEASE
     Dosage: UNK
  3. SILDENAFIL CITRATE. [Suspect]
     Active Substance: SILDENAFIL CITRATE
     Indication: ERECTILE DYSFUNCTION
     Dosage: 100 MG (100MG TABLET, 1 TABLET TOOK 30 TO 45 MINUTES BEFORE INTERCOURSE BY MOUTH)
     Route: 048

REACTIONS (1)
  - Therapeutic product effect incomplete [Unknown]
